FAERS Safety Report 5874801-7 (Version None)
Quarter: 2008Q3

REPORT INFORMATION
  Report Type: 
  Country: None (occurrence: None)
  Receive Date: 20080904
  Receipt Date: 20080825
  Transmission Date: 20090109
  Serious: Yes (Life-Threatening, Other)
  Sender: FDA-Public Use
  Company Number: JHP200800245

PATIENT
  Age: 29 Year
  Sex: Male

DRUGS (6)
  1. ADRENALIN CHLORIDE SOLUTION(EPINEPHRINE) NASAL, 1MGML [Suspect]
     Indication: VASOCONSTRICTION
     Dosage: 1:1000 ON SOAKED COTTON BALLS TO NASAL MUCOSA, TOPICAL
     Route: 061
  2. METOPROLOL TARTRATE [Suspect]
     Indication: HYPERTENSION
     Dosage: 5 MG, SINGLE, INTRAVENOUS; REGIMEN 3 MG, SINGLE, INTRAVENOUS
     Route: 042
  3. PROPOFOL [Concomitant]
  4. FENTANYL-100 [Concomitant]
  5. SEVOFLURANE [Concomitant]
  6. LIDOCAINE W/EPINEPHRIN (EPINEPHRINE, LIDOCAINE) [Concomitant]

REACTIONS (11)
  - CARDIOGENIC SHOCK [None]
  - DRUG INTERACTION [None]
  - EJECTION FRACTION DECREASED [None]
  - ELECTROCARDIOGRAM ST SEGMENT ELEVATION [None]
  - ELECTROMECHANICAL DISSOCIATION [None]
  - HAEMODYNAMIC INSTABILITY [None]
  - HYPERTENSION [None]
  - PULMONARY OEDEMA [None]
  - RESPIRATORY DISTRESS [None]
  - TACHYCARDIA [None]
  - VENTRICULAR HYPOKINESIA [None]
